FAERS Safety Report 8921140 (Version 2)
Quarter: 2014Q2

REPORT INFORMATION
  Report Type: Spontaneous
  Country: IT (occurrence: IT)
  Receive Date: 20121121
  Receipt Date: 20131018
  Transmission Date: 20141212
  Serious: Yes (Hospitalization)
  Sender: FDA-Public Use
  Company Number: IT-PFIZER INC-2012287529

PATIENT
  Age: 70 Year
  Sex: Female
  Weight: 14 kg

DRUGS (6)
  1. CYTARABINE [Suspect]
     Indication: DISSEMINATED LARGE CELL LYMPHOMA
     Dosage: 2000 MG/M2, DAILY
     Route: 042
     Dates: start: 20120805, end: 20120806
  2. RITUXIMAB [Suspect]
     Indication: DISSEMINATED LARGE CELL LYMPHOMA
     Dosage: 375 MG/M2
     Route: 042
     Dates: start: 20120804, end: 20120804
  3. METFORMIN HYDROCHLORIDE [Concomitant]
  4. TAMOXIFEN CITRATE [Concomitant]
  5. BROMAZEPAM [Concomitant]
  6. PAROXETINE MESILATE [Concomitant]

REACTIONS (3)
  - Psychomotor hyperactivity [Recovered/Resolved]
  - Abasia [Recovered/Resolved]
  - Somnolence [Recovered/Resolved]
